FAERS Safety Report 7484977-6 (Version None)
Quarter: 2011Q2

REPORT INFORMATION
  Report Type: 
  Country: None (occurrence: None)
  Receive Date: 20110517
  Receipt Date: 20100422
  Transmission Date: 20111010
  Serious: No
  Sender: FDA-Public Use
  Company Number: US-NOVEN-ALL1-2010-02381

PATIENT

DRUGS (4)
  1. METHYLPHENIDATE [Concomitant]
     Dosage: 10 MG, 1X/DAY:QD
     Route: 048
  2. SEROQUEL [Concomitant]
     Dosage: 25 MG, 1X/DAY:QD
     Route: 048
  3. DAYTRANA [Suspect]
     Dosage: 20 MG, 1X/DAY:QD
     Route: 062
     Dates: start: 20080101
  4. CLONIDINE [Concomitant]
     Dosage: 1 MG, 1X/DAY:QD
     Route: 048

REACTIONS (4)
  - WRONG TECHNIQUE IN DRUG USAGE PROCESS [None]
  - PSYCHOMOTOR HYPERACTIVITY [None]
  - PRODUCT QUALITY ISSUE [None]
  - DRUG PRESCRIBING ERROR [None]
